FAERS Safety Report 7869788-1 (Version None)
Quarter: 2011Q4

REPORT INFORMATION
  Report Type: 
  Country: None (occurrence: None)
  Receive Date: 20111028
  Receipt Date: 20110110
  Transmission Date: 20120403
  Serious: No
  Sender: FDA-Public Use
  Company Number: US-AMGEN-USASP2011001401

PATIENT
  Age: 45 Year
  Sex: Female

DRUGS (4)
  1. TREXALL [Concomitant]
     Dosage: UNK MG, QWK
     Dates: start: 20040101
  2. ENBREL [Suspect]
     Indication: PSORIATIC ARTHROPATHY
  3. ENBREL [Suspect]
     Indication: RHEUMATOID ARTHRITIS
     Dosage: 50 MG, QWK
     Dates: start: 20081201
  4. ENBREL [Suspect]
     Indication: PSORIASIS

REACTIONS (2)
  - PRURITUS [None]
  - ULCER [None]
